FAERS Safety Report 4300026-2 (Version None)
Quarter: 2004Q1

REPORT INFORMATION
  Report Type: 
  Country: None (occurrence: None)
  Receive Date: 20040219
  Receipt Date: 20040219
  Transmission Date: 20041129
  Serious: Yes (Hospitalization)
  Sender: FDA-Public Use
  Company Number: None

PATIENT
  Age: 52 Year
  Sex: Male
  Weight: 83.0083 kg

DRUGS (7)
  1. LEVOFLOXACIN [Suspect]
     Indication: URINARY TRACT INFECTION
     Dosage: 1 PO QD
     Route: 048
  2. WARFARIN SODIUM [Suspect]
     Indication: DEEP VEIN THROMBOSIS
     Dosage: 1 QD 1.5 ON FRI
  3. DOCUSATE [Concomitant]
  4. FERROUS SULFATE TAB [Concomitant]
  5. DIPHENHYDRAMINE HCL [Concomitant]
  6. OXYCODONE AND ACETAMINOPHEN [Concomitant]
  7. DIAZEPAM [Concomitant]

REACTIONS (6)
  - COLONIC HAEMORRHAGE [None]
  - DIZZINESS [None]
  - HAEMATEMESIS [None]
  - MELAENA [None]
  - NAUSEA [None]
  - WHITE BLOOD CELL COUNT INCREASED [None]
